FAERS Safety Report 9095058 (Version 1)
Quarter: 2013Q1

REPORT INFORMATION
  Report Type: Spontaneous
  Country: US (occurrence: None)
  Receive Date: 20130215
  Receipt Date: 20130215
  Transmission Date: 20140127
  Serious: No
  Sender: FDA-Public Use
  Company Number: None

PATIENT
  Age: 74 Year
  Sex: Female
  Weight: 81.65 kg

DRUGS (1)
  1. WELCHOL 3.75 G PACKET, DAIICHI [Suspect]
     Indication: BLOOD CHOLESTEROL INCREASED
     Dosage: 2T. DAY BY MOUTH
     Route: 048
     Dates: start: 20121128, end: 20121204

REACTIONS (4)
  - Abdominal pain upper [None]
  - Somnolence [None]
  - Throat tightness [None]
  - Memory impairment [None]
